FAERS Safety Report 15323757 (Version 1)
Quarter: 2018Q3

REPORT INFORMATION
  Report Type: Spontaneous
  Country: CN (occurrence: CN)
  Receive Date: 20180828
  Receipt Date: 20180828
  Transmission Date: 20181010
  Serious: Yes (Other)
  Sender: FDA-Public Use
  Company Number: CN-MERCK KGAA-2054307

PATIENT

DRUGS (1)
  1. NOVOTHYROX [Suspect]
     Active Substance: LEVOTHYROXINE SODIUM
     Indication: PRODUCT USED FOR UNKNOWN INDICATION

REACTIONS (8)
  - Anti-thyroid antibody positive [None]
  - Goitre [None]
  - Tri-iodothyronine free decreased [None]
  - Thyroxine free decreased [None]
  - Hyperthyroidism [None]
  - Blood thyroid stimulating hormone increased [None]
  - Thyroid mass [None]
  - Thyroxine decreased [None]

NARRATIVE: CASE EVENT DATE: 20180809
